FAERS Safety Report 22058066 (Version 1)
Quarter: 2023Q1

REPORT INFORMATION
  Report Type: Spontaneous
  Country: CN (occurrence: CN)
  Receive Date: 20230303
  Receipt Date: 20230303
  Transmission Date: 20230418
  Serious: Yes (Other)
  Sender: FDA-Public Use
  Company Number: CN-PFIZER INC-PV202300037245

PATIENT
  Age: 12 Month
  Sex: Male
  Weight: 9 kg

DRUGS (2)
  1. METHOTREXATE SODIUM [Suspect]
     Active Substance: METHOTREXATE SODIUM
     Indication: Chemotherapy
     Dosage: UNK UNK, 1X/DAY
     Route: 041
     Dates: start: 20230207, end: 20230207
  2. METHOTREXATE SODIUM [Suspect]
     Active Substance: METHOTREXATE SODIUM
     Indication: Acute lymphocytic leukaemia

REACTIONS (1)
  - Gastrointestinal injury [Recovering/Resolving]

NARRATIVE: CASE EVENT DATE: 20230210
